FAERS Safety Report 8602046-6 (Version None)
Quarter: 2012Q3

REPORT INFORMATION
  Report Type: 
  Country: None (occurrence: None)
  Receive Date: 20120817
  Receipt Date: 20120807
  Transmission Date: 20120928
  Serious: Yes (Hospitalization, Other)
  Sender: FDA-Public Use
  Company Number: ZA-SANOFI-AVENTIS-2012SA013970

PATIENT
  Age: 41 Year
  Sex: Male
  Weight: 58.3 kg

DRUGS (2)
  1. BLINDED THERAPY [Suspect]
     Route: 065
     Dates: start: 20111013, end: 20111221
  2. BLINDED THERAPY [Suspect]
     Indication: PULMONARY TUBERCULOSIS
     Route: 065
     Dates: start: 20111013, end: 20111221

REACTIONS (5)
  - POLYDIPSIA [None]
  - WEIGHT DECREASED [None]
  - DIABETIC KETOACIDOSIS [None]
  - POLYURIA [None]
  - TYPE 2 DIABETES MELLITUS [None]
